FAERS Safety Report 25246748 (Version 2)
Quarter: 2025Q2

REPORT INFORMATION
  Report Type: Report from Study
  Country: US (occurrence: US)
  Receive Date: 20250428
  Receipt Date: 20250430
  Transmission Date: 20250717
  Serious: Yes (Death, Disabling, Other)
  Sender: MERCK SHARP & DOHME LLC
  Company Number: US-009507513-2280378

PATIENT
  Sex: Male

DRUGS (12)
  1. KEYTRUDA [Suspect]
     Active Substance: PEMBROLIZUMAB
     Indication: Clear cell renal cell carcinoma
     Dosage: 200MG, Q3W
     Route: 042
     Dates: start: 20240531, end: 202411
  2. LEVAQUIN [Concomitant]
     Active Substance: LEVOFLOXACIN
     Route: 065
  3. ALBUTEROL [Concomitant]
     Active Substance: ALBUTEROL
  4. ZYLOPRIM [Concomitant]
     Active Substance: ALLOPURINOL
  5. AMLODIPINE [Concomitant]
     Active Substance: AMLODIPINE BESYLATE
  6. DROSPIRENONE [Concomitant]
     Active Substance: DROSPIRENONE
  7. FENOFIBRATE [Concomitant]
     Active Substance: FENOFIBRATE
  8. FLONASE [Concomitant]
     Active Substance: FLUTICASONE PROPIONATE
  9. SYNTHROID [Concomitant]
     Active Substance: LEVOTHYROXINE SODIUM
  10. ATIVAN [Concomitant]
     Active Substance: LORAZEPAM
  11. PREDNISONE [Concomitant]
     Active Substance: PREDNISONE
  12. VITAMIN B [Concomitant]
     Active Substance: VITAMIN B

REACTIONS (10)
  - Respiratory failure [Fatal]
  - Asthenia [Unknown]
  - Malaise [Unknown]
  - Aspiration [Fatal]
  - Productive cough [Unknown]
  - Pneumonitis [Unknown]
  - Cardiac arrest [Fatal]
  - Wheelchair user [Unknown]
  - Somnolence [Unknown]
  - Malignant neoplasm progression [Fatal]

NARRATIVE: CASE EVENT DATE: 20240101
